FAERS Safety Report 4424704-X (Version None)
Quarter: 2004Q3

REPORT INFORMATION
  Report Type: 
  Country: None (occurrence: None)
  Receive Date: 20040809
  Receipt Date: 20040727
  Transmission Date: 20050211
  Serious: Yes (Hospitalization)
  Sender: FDA-Public Use
  Company Number: 2004AP03185

PATIENT
  Age: 50 Year
  Sex: Female

DRUGS (3)
  1. MEROPEN [Suspect]
     Dosage: 0.5 G BID IV
     Route: 042
     Dates: start: 20031119
  2. BAKTAR [Concomitant]
  3. FUNGUARD [Concomitant]

REACTIONS (2)
  - DIALYSIS [None]
  - PULMONARY EOSINOPHILIA [None]
